FAERS Safety Report 6205426-1 (Version None)
Quarter: 2009Q2

REPORT INFORMATION
  Report Type: 
  Country: None (occurrence: None)
  Receive Date: 20090527
  Receipt Date: 20090317
  Transmission Date: 20091009
  Serious: No
  Sender: FDA-Public Use
  Company Number: US-ABBOTT-09P-163-0563328-00

PATIENT
  Sex: Male
  Weight: 79.45 kg

DRUGS (3)
  1. SIMCOR [Suspect]
     Indication: HIGH DENSITY LIPOPROTEIN ABNORMAL
     Dosage: 500/20MG
     Dates: start: 20080922
  2. SIMCOR [Suspect]
     Indication: LOW DENSITY LIPOPROTEIN ABNORMAL
  3. JANUMET [Concomitant]
     Indication: DIABETES MELLITUS
     Dosage: 50/500 MG/DAY
     Dates: start: 20080101

REACTIONS (1)
  - ERECTILE DYSFUNCTION [None]
